FAERS Safety Report 16997044 (Version 1)
Quarter: 2019Q4

REPORT INFORMATION
  Report Type: Spontaneous
  Country: US (occurrence: US)
  Receive Date: 20190924
  Receipt Date: 20190924
  Transmission Date: 20200122
  Serious: No
  Sender: FDA-Public Use
  Company Number: None

PATIENT
  Age: 72 Year
  Sex: Female
  Weight: 47.63 kg

DRUGS (1)
  1. FORTEO [Suspect]
     Active Substance: TERIPARATIDE
     Indication: SENILE OSTEOPOROSIS
     Dosage: INJECT 20MCG SUBCUTANEOUSLY DAILY AS DIRECTED IN THE THIGH OR ABDOMINAL WALL
     Route: 058

REACTIONS (4)
  - Hypersomnia [None]
  - Pain [None]
  - Insomnia [None]
  - Tremor [None]
